FAERS Safety Report 4300312-6 (Version None)
Quarter: 2004Q1

REPORT INFORMATION
  Report Type: 
  Country: None (occurrence: None)
  Receive Date: 20040220
  Receipt Date: 20040209
  Transmission Date: 20041129
  Serious: Yes (Death, Life-Threatening)
  Sender: FDA-Public Use
  Company Number: WAES 0402USA01048

PATIENT
  Age: 12 Day
  Sex: Female
  Weight: 1 kg

DRUGS (1)
  1. INDOCIN I.V. [Suspect]
     Indication: PATENT DUCTUS ARTERIOSUS
     Route: 051
     Dates: start: 19970123, end: 19970124

REACTIONS (4)
  - GASTROINTESTINAL PERFORATION [None]
  - NEONATAL DISORDER [None]
  - SEPSIS [None]
  - SEPSIS NEONATAL [None]
